FAERS Safety Report 4338061-0 (Version None)
Quarter: 2004Q2

REPORT INFORMATION
  Report Type: 
  Country: None (occurrence: None)
  Receive Date: 20040407
  Receipt Date: 20040326
  Transmission Date: 20050107
  Serious: Yes (Hospitalization)
  Sender: FDA-Public Use
  Company Number: FR-JNJFOC-20040305858

PATIENT
  Age: 84 Year
  Sex: Female

DRUGS (3)
  1. HALDOL [Suspect]
     Indication: ABNORMAL BEHAVIOUR
     Dosage: ORAL
     Route: 048
     Dates: start: 20030915, end: 20031215
  2. TIAPRIDAL (TIAPRIDE) [Suspect]
     Indication: DEMENTIA ALZHEIMER'S TYPE
     Dosage: IN 1 DAY, ORAL
     Route: 048
     Dates: start: 20030820, end: 20031215
  3. ARICEPT [Concomitant]

REACTIONS (3)
  - DRUG INTERACTION [None]
  - EXTRAPYRAMIDAL DISORDER [None]
  - HEPATITIS [None]
